FAERS Safety Report 9003443 (Version 3)
Quarter: 2013Q1

REPORT INFORMATION
  Report Type: Spontaneous
  Country: US (occurrence: US)
  Receive Date: 20130108
  Receipt Date: 20130125
  Transmission Date: 20140127
  Serious: Yes (Hospitalization)
  Sender: FDA-Public Use
  Company Number: US-MERCK-1301USA000720

PATIENT
  Age: 78 Year
  Sex: Female

DRUGS (8)
  1. ASMANEX TWISTHALER [Suspect]
     Indication: WHEEZING
     Dosage: ONE INHALATION TWICE A DAY
     Route: 055
     Dates: start: 20121023
  2. LEVOTHYROXINE SODIUM [Concomitant]
  3. OXYCODONE [Concomitant]
  4. LISINOPRIL [Concomitant]
  5. CALCIUM (UNSPECIFIED) [Concomitant]
  6. VITAMIN D (UNSPECIFIED) [Concomitant]
  7. FLUCONAZOLE [Concomitant]
  8. ALBUTEROL INHALER [Concomitant]

REACTIONS (4)
  - Knee arthroplasty [Recovering/Resolving]
  - Device malfunction [Unknown]
  - Drug dose omission [Unknown]
  - Thrombophlebitis [Recovering/Resolving]
